FAERS Safety Report 17826852 (Version 1)
Quarter: 2020Q2

REPORT INFORMATION
  Report Type: Report from Study
  Country: IE (occurrence: IE)
  Receive Date: 20200526
  Receipt Date: 20200526
  Transmission Date: 20200714
  Serious: Yes (Hospitalization, Other)
  Sender: FDA-Public Use
  Company Number: NVSC2020IE092350

PATIENT
  Age: 48 Year
  Sex: Female
  Weight: 72.8 kg

DRUGS (3)
  1. LETROZOLE. [Suspect]
     Active Substance: LETROZOLE
     Indication: BREAST CANCER METASTATIC
     Dosage: UNK
     Route: 065
  2. BYL719 [Suspect]
     Active Substance: ALPELISIB
     Dosage: 300 MG, QD
     Route: 048
     Dates: start: 20200515
  3. BYL719 [Suspect]
     Active Substance: ALPELISIB
     Indication: BREAST CANCER METASTATIC
     Dosage: 300 MG, QD
     Route: 048
     Dates: start: 20200423, end: 20200515

REACTIONS (7)
  - Skin toxicity [Unknown]
  - Laryngeal oedema [Recovered/Resolved]
  - Malignant neoplasm progression [Unknown]
  - Pruritus [Recovered/Resolved]
  - Rash macular [Recovered/Resolved]
  - Rash [Recovered/Resolved]
  - Breast cancer metastatic [Unknown]

NARRATIVE: CASE EVENT DATE: 20200505
